FAERS Safety Report 4775827-7 (Version None)
Quarter: 2005Q3

REPORT INFORMATION
  Report Type: 
  Country: None (occurrence: None)
  Receive Date: 20050914
  Receipt Date: 20050317
  Transmission Date: 20060218
  Serious: Yes (Hospitalization)
  Sender: FDA-Public Use
  Company Number: 163-20785-05030523

PATIENT
  Age: 60 Year
  Sex: Male
  Weight: 88 kg

DRUGS (2)
  1. THALOMID [Suspect]
     Indication: MULTIPLE MYELOMA
     Dosage: 100 MG, QD, ORAL
     Route: 048
     Dates: start: 20041109, end: 20041112
  2. DEXAMETHASONE [Suspect]
     Indication: MULTIPLE MYELOMA
     Dosage: 20 MG, QD X 4 DAYS Q 3 WKS., ORAL
     Route: 048
     Dates: start: 20041108, end: 20041111

REACTIONS (3)
  - ESCHERICHIA BACTERAEMIA [None]
  - HYPOTENSION [None]
  - NEUTROPENIA [None]
